FAERS Safety Report 15369932 (Version 3)
Quarter: 2018Q4

REPORT INFORMATION
  Report Type: Spontaneous
  Country: CA (occurrence: CA)
  Receive Date: 20180911
  Receipt Date: 20181010
  Transmission Date: 20190204
  Serious: Yes (Hospitalization)
  Sender: FDA-Public Use
  Company Number: CA-CELLTRION INC.-2017CA013855

PATIENT

DRUGS (5)
  1. INFLECTRA [Suspect]
     Active Substance: INFLIXIMAB-DYYB
     Dosage: 800 MG, (EVERY 2, 6 WEEKS, THEN EVERY 8 WEEKS)
     Route: 042
     Dates: start: 20170922
  2. PREDNISONE. [Concomitant]
     Active Substance: PREDNISONE
     Dosage: UNK
  3. INFLECTRA [Suspect]
     Active Substance: INFLIXIMAB-DYYB
     Indication: COLITIS ULCERATIVE
     Dosage: 400 MG, CYCLIC (AT 0,2,6 WEEKS THEN EVERY 8 WEEKS)
     Route: 042
     Dates: start: 2017, end: 2017
  4. INFLECTRA [Suspect]
     Active Substance: INFLIXIMAB-DYYB
     Dosage: 800 MG, CURRENTLY BEING INFUSED WITH INFLECTRA AT DOUBLE THE DOSE WHICH IS 800MG
     Route: 042
     Dates: start: 2017, end: 2017
  5. ASACOL [Concomitant]
     Active Substance: MESALAMINE
     Dosage: UNK
     Route: 065

REACTIONS (8)
  - Seborrhoea [Unknown]
  - Skin lesion [Unknown]
  - Condition aggravated [Unknown]
  - Colitis ulcerative [Unknown]
  - Product use issue [Unknown]
  - Herpes zoster [Unknown]
  - Rash erythematous [Unknown]
  - Weight increased [Unknown]

NARRATIVE: CASE EVENT DATE: 2017
